FAERS Safety Report 22066207 (Version 2)
Quarter: 2023Q2

REPORT INFORMATION
  Report Type: Spontaneous
  Country: TW (occurrence: TW)
  Receive Date: 20230306
  Receipt Date: 20230522
  Transmission Date: 20230722
  Serious: Yes (Hospitalization, Other)
  Sender: FDA-Public Use
  Company Number: TW-BRISTOL-MYERS SQUIBB COMPANY-2023-031849

PATIENT
  Age: 66 Year
  Sex: Female

DRUGS (5)
  1. OPDIVO [Suspect]
     Active Substance: NIVOLUMAB
     Indication: Gastric cancer
     Route: 042
     Dates: start: 20221115
  2. DOCETAXEL [Suspect]
     Active Substance: DOCETAXEL
     Indication: Gastric cancer
     Route: 042
     Dates: start: 20221115
  3. FLUOROURACIL [Suspect]
     Active Substance: FLUOROURACIL
  4. LEUCOVORIN [Suspect]
     Active Substance: LEUCOVORIN
  5. OXALIPLATIN [Suspect]
     Active Substance: OXALIPLATIN

REACTIONS (17)
  - White blood cell disorder [Unknown]
  - Fatigue [Unknown]
  - Alopecia [Unknown]
  - Mucosal inflammation [Unknown]
  - Decreased appetite [Unknown]
  - Weight decreased [Unknown]
  - Diarrhoea [Unknown]
  - Nail disorder [Unknown]
  - Insomnia [Unknown]
  - Immune-mediated lung disease [Unknown]
  - Neutrophil count abnormal [Unknown]
  - Alanine aminotransferase abnormal [Unknown]
  - Haemoglobin abnormal [Unknown]
  - Platelet count abnormal [Unknown]
  - Blood creatinine abnormal [Unknown]
  - Aspartate aminotransferase abnormal [Unknown]
  - Acute kidney injury [Unknown]

NARRATIVE: CASE EVENT DATE: 20221209
